FAERS Safety Report 6654163-8 (Version None)
Quarter: 2010Q1

REPORT INFORMATION
  Report Type: 
  Country: None (occurrence: None)
  Receive Date: 20100326
  Receipt Date: 20100316
  Transmission Date: 20100710
  Serious: Yes (Other)
  Sender: FDA-Public Use
  Company Number: CA-PFIZER INC-2010033163

PATIENT
  Age: 62 Year
  Sex: Female

DRUGS (1)
  1. CHAMPIX [Suspect]

REACTIONS (1)
  - MENTAL DISORDER [None]
